FAERS Safety Report 15629931 (Version 1)
Quarter: 2018Q4

REPORT INFORMATION
  Report Type: Spontaneous
  Country: US (occurrence: US)
  Receive Date: 20181117
  Receipt Date: 20181117
  Transmission Date: 20190205
  Serious: Yes (Life-Threatening, Hospitalization)
  Sender: FDA-Public Use
  Company Number: US-MYLANLABS-2018M1086415

PATIENT
  Age: 16 Year
  Sex: Female

DRUGS (1)
  1. HYDROXYCHLOROQUINE [Suspect]
     Active Substance: HYDROXYCHLOROQUINE
     Indication: PRODUCT USED FOR UNKNOWN INDICATION
     Route: 048

REACTIONS (8)
  - Intentional overdose [Unknown]
  - Toxicity to various agents [Unknown]
  - Fluid overload [Unknown]
  - Pulse absent [Unknown]
  - Blood potassium decreased [Unknown]
  - Tachyarrhythmia [Unknown]
  - Hypotension [Recovered/Resolved]
  - Suicide attempt [Unknown]
